FAERS Safety Report 5190261-6 (Version None)
Quarter: 2006Q4

REPORT INFORMATION
  Report Type: 
  Country: None (occurrence: None)
  Receive Date: 20061222
  Receipt Date: 20060808
  Transmission Date: 20070319
  Serious: No
  Sender: FDA-Public Use
  Company Number: US-AMGEN-KDL189365

PATIENT
  Sex: Female

DRUGS (5)
  1. NEUPOGEN [Suspect]
     Indication: CHEMOTHERAPY
     Dates: start: 20060629
  2. NEULASTA [Suspect]
     Indication: CHEMOTHERAPY
     Dates: start: 20060623
  3. ARANESP [Suspect]
     Indication: ANAEMIA OF MALIGNANT DISEASE
  4. ETOPOSIDE [Concomitant]
  5. CARBOPLATIN [Concomitant]

REACTIONS (8)
  - CONSTIPATION [None]
  - COUGH [None]
  - HALLUCINATION [None]
  - INJECTION SITE BRUISING [None]
  - INJECTION SITE PAIN [None]
  - INSOMNIA [None]
  - NAUSEA [None]
  - WHITE BLOOD CELL COUNT DECREASED [None]
